FAERS Safety Report 23428731 (Version 6)
Quarter: 2025Q3

REPORT INFORMATION
  Report Type: Report from Study
  Country: EU (occurrence: EU)
  Receive Date: 20240122
  Receipt Date: 20250801
  Transmission Date: 20251020
  Serious: Yes (Other)
  Sender: PFIZER
  Company Number: EU-PFM-2024-00332

PATIENT
  Age: 73 Year
  Sex: Male
  Weight: 73 kg

DRUGS (18)
  1. ENCORAFENIB [Suspect]
     Active Substance: ENCORAFENIB
     Indication: Malignant melanoma
     Dosage: 450 MG, 1X/DAY
     Route: 048
     Dates: start: 20220125
  2. BINIMETINIB [Suspect]
     Active Substance: BINIMETINIB
     Indication: Malignant melanoma
     Dosage: 45 MG, 2X/DAY
     Route: 048
     Dates: start: 20220125
  3. BISOPROLOL [Concomitant]
     Active Substance: BISOPROLOL
     Route: 065
  4. PICOSULFAT [Concomitant]
     Indication: Constipation
     Route: 065
     Dates: start: 20220308, end: 20220401
  5. FAMOTIDINE [Concomitant]
     Active Substance: FAMOTIDINE
     Indication: Dyspepsia
     Route: 065
     Dates: start: 20220308, end: 20220401
  6. FAMOTIDINE [Concomitant]
     Active Substance: FAMOTIDINE
     Indication: Abdominal pain upper
     Route: 065
     Dates: start: 20221122, end: 2023
  7. ADVANTAN MILK [Concomitant]
     Indication: Rash maculo-papular
     Route: 065
     Dates: start: 20220505, end: 20220520
  8. MESALAMINE [Concomitant]
     Active Substance: MESALAMINE
     Indication: Large intestinal ulcer
     Route: 065
     Dates: start: 20220810, end: 20221128
  9. LAXANS-RATIOPHARM PICO [Concomitant]
     Indication: Constipation
     Route: 065
     Dates: start: 20220308, end: 20220401
  10. LAXANS-RATIOPHARM PICO [Concomitant]
     Route: 065
     Dates: start: 20220830, end: 20220927
  11. CETIRIZINE HYDROCHLORIDE [Concomitant]
     Active Substance: CETIRIZINE HYDROCHLORIDE
     Indication: Pruritus
     Route: 065
     Dates: start: 20220830, end: 20230119
  12. FERRO-SANOL DUODENAL [Concomitant]
     Active Substance: FERROUS GLYCINE SULFATE
     Indication: Blood iron decreased
     Route: 065
     Dates: start: 20221110, end: 20230621
  13. CIMETIDIN [CIMETIDINE HYDROCHLORIDE] [Concomitant]
     Indication: Abdominal pain upper
     Route: 065
     Dates: start: 20221223, end: 2023
  14. BISACODYL [Concomitant]
     Active Substance: BISACODYL
     Indication: Constipation
     Route: 065
     Dates: start: 20230209, end: 202305
  15. METAMIZOL [Concomitant]
     Active Substance: METAMIZOLE SODIUM
     Indication: Fracture
     Route: 065
     Dates: start: 20230223, end: 2023
  16. METAMIZOL [Concomitant]
     Active Substance: METAMIZOLE SODIUM
     Indication: Abdominal pain upper
  17. MESALAMINE [Concomitant]
     Active Substance: MESALAMINE
     Indication: Large intestinal ulcer
     Route: 065
     Dates: start: 20220801, end: 20221128
  18. METHYLPREDNISOLONE ACEPONATE [Concomitant]
     Active Substance: METHYLPREDNISOLONE ACEPONATE
     Indication: Pruritus
     Route: 065
     Dates: start: 20230925, end: 20240108

REACTIONS (4)
  - Second primary malignancy [Recovered/Resolved]
  - Basal cell carcinoma [Recovered/Resolved]
  - Diarrhoea [Recovered/Resolved]
  - Pruritus [Recovered/Resolved]

NARRATIVE: CASE EVENT DATE: 20230827
